FAERS Safety Report 7489774-3 (Version None)
Quarter: 2011Q2

REPORT INFORMATION
  Report Type: 
  Country: None (occurrence: None)
  Receive Date: 20110519
  Receipt Date: 20110511
  Transmission Date: 20111010
  Serious: No
  Sender: FDA-Public Use
  Company Number: US-BIOGENIDEC-2011BI018076

PATIENT
  Sex: Male

DRUGS (2)
  1. TYSABRI [Suspect]
     Indication: MULTIPLE SCLEROSIS
     Route: 042
     Dates: start: 20110426
  2. TYSABRI [Suspect]
     Route: 042
     Dates: start: 20080529, end: 20100603

REACTIONS (2)
  - ASTHENIA [None]
  - COORDINATION ABNORMAL [None]
